FAERS Safety Report 4743294-5 (Version None)
Quarter: 2005Q3

REPORT INFORMATION
  Report Type: 
  Country: None (occurrence: None)
  Receive Date: 20050811
  Receipt Date: 20050725
  Transmission Date: 20060218
  Serious: Yes (Death, Hospitalization)
  Sender: FDA-Public Use
  Company Number: 2005BI012404

PATIENT
  Age: 46 Year
  Sex: Female

DRUGS (9)
  1. AVONEX [Suspect]
     Indication: MULTIPLE SCLEROSIS
     Dosage: 30 UG;QW; IM
     Route: 042
     Dates: start: 20010426, end: 20030918
  2. AVONEX [Suspect]
     Indication: MULTIPLE SCLEROSIS
     Dosage: 30 UG;QW; IM
     Route: 030
     Dates: start: 20030925, end: 20050608
  3. BIRTH CONTROL PILL [Concomitant]
  4. REFRXOR [Concomitant]
  5. BUSPAR [Concomitant]
  6. NEURONTIN [Concomitant]
  7. FLEXERIL [Concomitant]
  8. PHENERGAN [Concomitant]
  9. VOLTAREN [Concomitant]

REACTIONS (1)
  - CHRONIC OBSTRUCTIVE PULMONARY DISEASE [None]
